FAERS Safety Report 15335103 (Version 1)
Quarter: 2018Q3

REPORT INFORMATION
  Report Type: Spontaneous
  Country: US (occurrence: US)
  Receive Date: 20180830
  Receipt Date: 20180830
  Transmission Date: 20181010
  Serious: Yes (Other)
  Sender: FDA-Public Use
  Company Number: US-GILEAD-2018-0359962

PATIENT
  Sex: Male

DRUGS (1)
  1. YESCARTA [Suspect]
     Active Substance: AXICABTAGENE CILOLEUCEL
     Indication: PRODUCT USED FOR UNKNOWN INDICATION
     Dosage: UNK, SINGLE DOSE
     Route: 065
     Dates: start: 20180621, end: 20180621

REACTIONS (6)
  - Neurotoxicity [Unknown]
  - Atrial fibrillation [Unknown]
  - Cytokine release syndrome [Unknown]
  - Pyrexia [Unknown]
  - Intracranial pressure increased [Unknown]
  - Meningioma [Unknown]

NARRATIVE: CASE EVENT DATE: 20180622
